FAERS Safety Report 10455886 (Version 3)
Quarter: 2014Q4

REPORT INFORMATION
  Report Type: Spontaneous
  Country: GB (occurrence: GB)
  Receive Date: 20140916
  Receipt Date: 20141009
  Transmission Date: 20150528
  Serious: Yes (Death, Other)
  Sender: FDA-Public Use
  Company Number: GB-AUROBINDO-AUR-APL-2013-09830

PATIENT
  Age: 42 Year
  Sex: Female
  Weight: 74 kg

DRUGS (18)
  1. NORVIR [Suspect]
     Active Substance: RITONAVIR
     Dosage: 400 MG,TWO TIMES A DAY,
     Route: 048
  2. INTELENCE [Suspect]
     Active Substance: ETRAVIRINE
     Indication: HIV INFECTION
     Dosage: 1000 MG,ONCE A DAY,
     Route: 048
     Dates: start: 20081023
  3. ISENTRESS [Suspect]
     Active Substance: RALTEGRAVIR POTASSIUM
     Dosage: 400 MG,TWO TIMES A DAY,
     Route: 048
  4. NORVIR [Suspect]
     Active Substance: RITONAVIR
     Dosage: 200 MG,ONCE A DAY,
     Route: 048
     Dates: start: 20081023
  5. PREZISTA [Suspect]
     Active Substance: DARUNAVIR ETHANOLATE
     Indication: HIV INFECTION
     Dosage: 600 MG,TWO TIMES A DAY,
     Route: 048
     Dates: start: 20081023
  6. OXYGEN. [Concomitant]
     Active Substance: OXYGEN
     Indication: PRODUCT USED FOR UNKNOWN INDICATION
     Dosage: UNK
     Route: 065
  7. NORVIR [Suspect]
     Active Substance: RITONAVIR
     Indication: HIV INFECTION
     Dosage: 100 MG,TWO TIMES A DAY,
     Route: 048
     Dates: start: 20060906, end: 20081023
  8. NOVORAPID [Concomitant]
     Active Substance: INSULIN ASPART
     Indication: GESTATIONAL DIABETES
     Dosage: 200 MG, TWO TIMES A DAY
     Route: 065
  9. INTELENCE [Suspect]
     Active Substance: ETRAVIRINE
     Dosage: 1000 MG, ONCE A DAY
     Route: 048
     Dates: end: 20081023
  10. APTIVUS [Suspect]
     Active Substance: TIPRANAVIR
     Indication: HIV INFECTION
     Dosage: 500 MG,TWO TIMES A DAY,
     Route: 048
     Dates: start: 20060905, end: 20081023
  11. INSULIN [Concomitant]
     Active Substance: INSULIN NOS
     Indication: GESTATIONAL DIABETES
     Dosage: UNK UNK
     Route: 065
  12. ZIDOVUDINE CAPSULES 100MG [Suspect]
     Active Substance: ZIDOVUDINE
     Indication: ANTIVIRAL PROPHYLAXIS
     Dosage: UNK UNK,UNK,
     Route: 065
  13. INTELENCE [Suspect]
     Active Substance: ETRAVIRINE
     Dosage: 500 MG,TWO TIMES A DAY,
     Route: 048
  14. ISENTRESS [Suspect]
     Active Substance: RALTEGRAVIR POTASSIUM
     Indication: HIV INFECTION
     Dosage: 400 MG,TWO TIMES A DAY,
     Route: 048
     Dates: start: 20081023, end: 20090221
  15. PREDNISOLONE. [Concomitant]
     Active Substance: PREDNISOLONE
     Indication: PRODUCT USED FOR UNKNOWN INDICATION
     Dosage: 25 MG,UNK
     Route: 065
  16. NITROUS OXIDE. [Concomitant]
     Active Substance: NITROUS OXIDE
     Indication: PRODUCT USED FOR UNKNOWN INDICATION
     Route: 065
  17. TRUVADA [Suspect]
     Active Substance: EMTRICITABINE\TENOFOVIR DISOPROXIL FUMARATE
     Indication: HIV INFECTION
     Dosage: UNK UNK,UNK,
     Route: 048
     Dates: start: 20070605, end: 20081023
  18. ZIDOVUDINE. [Concomitant]
     Active Substance: ZIDOVUDINE
     Indication: ANTIVIRAL PROPHYLAXIS
     Dosage: UNK
     Route: 042

REACTIONS (6)
  - Alanine aminotransferase abnormal [Recovered/Resolved]
  - Drug-induced liver injury [Unknown]
  - Lipodystrophy acquired [Recovered/Resolved]
  - Exposure during pregnancy [Recovered/Resolved]
  - Aspartate aminotransferase abnormal [Recovered/Resolved]
  - Premature labour [Recovered/Resolved]

NARRATIVE: CASE EVENT DATE: 20090221
